FAERS Safety Report 5255883-2 (Version None)
Quarter: 2007Q1

REPORT INFORMATION
  Report Type: 
  Country: None (occurrence: None)
  Receive Date: 20070301
  Receipt Date: 20070220
  Transmission Date: 20070707
  Serious: Yes (Other)
  Sender: FDA-Public Use
  Company Number: 235756

PATIENT
  Age: 67 Year
  Sex: Female
  Weight: 69.5 kg

DRUGS (10)
  1. AVASTIN [Suspect]
     Indication: COLORECTAL CANCER
     Dosage: 5 MG/KG, UNK, UNK
  2. OXALIPLATIN [Suspect]
     Indication: COLORECTAL CANCER
     Dosage: 85 MG/M2, UNK, UNK
  3. XELODA [Suspect]
     Indication: COLORECTAL CANCER
     Dosage: 5000 MG, UNK, UNK
  4. ACIPHEX [Concomitant]
  5. SYNTHROID [Concomitant]
  6. LOPRESSOR [Concomitant]
  7. COLACE (DOCUSATE SODIUM) [Concomitant]
  8. FENTANYL CITRATE [Concomitant]
  9. REGLAN [Concomitant]
  10. VICODIN [Concomitant]

REACTIONS (7)
  - AORTIC VALVE INCOMPETENCE [None]
  - BLOOD PRESSURE SYSTOLIC INCREASED [None]
  - CHEST PAIN [None]
  - CREATINE PHOSPHOKINASE DECREASED [None]
  - PULMONARY HYPERTENSION [None]
  - TRICUSPID VALVE INCOMPETENCE [None]
  - VENTRICULAR DYSFUNCTION [None]
